FAERS Safety Report 5196837-4 (Version None)
Quarter: 2006Q4

REPORT INFORMATION
  Report Type: 
  Country: None (occurrence: None)
  Receive Date: 20061227
  Receipt Date: 20061213
  Transmission Date: 20070319
  Serious: Yes (Death, Other)
  Sender: FDA-Public Use
  Company Number: 2006153537

PATIENT
  Sex: Male

DRUGS (1)
  1. NEURONTIN [Suspect]
     Indication: BIPOLAR DISORDER

REACTIONS (9)
  - AGGRESSION [None]
  - AGITATION [None]
  - AKATHISIA [None]
  - COMPLETED SUICIDE [None]
  - DISTURBANCE IN SOCIAL BEHAVIOUR [None]
  - DRUG INEFFECTIVE [None]
  - HOMICIDE [None]
  - PSYCHOTIC DISORDER [None]
  - SUICIDAL BEHAVIOUR [None]
